FAERS Safety Report 18954255 (Version 1)
Quarter: 2021Q1

REPORT INFORMATION
  Report Type: Spontaneous
  Country: FR (occurrence: FR)
  Receive Date: 20210301
  Receipt Date: 20210301
  Transmission Date: 20210420
  Serious: Yes (Hospitalization)
  Sender: FDA-Public Use
  Company Number: FR-GLAXOSMITHKLINE-FRCH2021GSK009688

PATIENT
  Age: 31 Year
  Sex: Female
  Weight: 64 kg

DRUGS (1)
  1. SCOPODERM TTS [Suspect]
     Active Substance: SCOPOLAMINE
     Indication: OCCUPATIONAL EXPOSURE TO PRODUCT
     Dosage: UNK (QUANTITY DIFFICULT TO ASSESS)
     Route: 003
     Dates: start: 20210116, end: 20210116

REACTIONS (5)
  - Mydriasis [Recovered/Resolved]
  - Headache [Recovered/Resolved]
  - Occupational exposure to product [Recovered/Resolved]
  - Vision blurred [Recovered/Resolved]
  - Hypertension [Recovered/Resolved]

NARRATIVE: CASE EVENT DATE: 20210116
